FAERS Safety Report 8776232 (Version 2)
Quarter: 2012Q4

REPORT INFORMATION
  Report Type: 
  Country: US (occurrence: US)
  Receive Date: 20120910
  Receipt Date: 20121001
  Transmission Date: 20130627
  Serious: Yes (Hospitalization)
  Sender: FDA-Public Use
  Company Number: US-PFIZER INC-2012217920

PATIENT
  Age: 45 Year
  Sex: Female
  Weight: 97 kg

DRUGS (4)
  1. LEVOXYL [Suspect]
     Indication: THYROID DISORDER
     Dosage: UNK
     Dates: start: 2004
  2. LEVOXYL [Suspect]
     Dosage: 175mcg or 200mcg, daily
  3. CETIRIZINE [Concomitant]
     Indication: HYPERSENSITIVITY
     Dosage: 10 mg, daily
  4. CETIRIZINE [Concomitant]
     Indication: SINUS DISORDER

REACTIONS (2)
  - Dyspnoea [Recovered/Resolved]
  - Menorrhagia [Recovered/Resolved]
